FAERS Safety Report 6186356-0 (Version None)
Quarter: 2009Q2

REPORT INFORMATION
  Report Type: 
  Country: None (occurrence: None)
  Receive Date: 20090511
  Receipt Date: 20090430
  Transmission Date: 20091009
  Serious: Yes (Hospitalization)
  Sender: FDA-Public Use
  Company Number: US-PFIZER INC-2009200552

PATIENT
  Sex: Male
  Weight: 37.506 kg

DRUGS (1)
  1. SERTRALINE HCL [Suspect]
     Indication: OBSESSIVE-COMPULSIVE DISORDER
     Dosage: 75 MG, 1X/DAY
     Route: 048
     Dates: start: 20090327, end: 20090415

REACTIONS (1)
  - ABNORMAL BEHAVIOUR [None]
